FAERS Safety Report 5112796-4 (Version None)
Quarter: 2006Q3

REPORT INFORMATION
  Report Type: 
  Country: None (occurrence: None)
  Receive Date: 20060922
  Receipt Date: 20060915
  Transmission Date: 20061208
  Serious: Yes (Other)
  Sender: FDA-Public Use
  Company Number: 2006UW18134

PATIENT
  Age: 25 Year
  Sex: Female
  Weight: 49 kg

DRUGS (4)
  1. SEROQUEL [Suspect]
     Route: 048
     Dates: start: 20030101
  2. ZOLOFT [Concomitant]
  3. ANXIETY MEDICATIONS [Concomitant]
  4. DEPRESSION MEDICATIONS [Concomitant]

REACTIONS (3)
  - HEAD INJURY [None]
  - INTRACRANIAL ANEURYSM [None]
  - ROAD TRAFFIC ACCIDENT [None]
